FAERS Safety Report 21566243 (Version 1)
Quarter: 2022Q4

REPORT INFORMATION
  Report Type: Report from Study
  Country: IT (occurrence: IT)
  Receive Date: 20221108
  Receipt Date: 20221108
  Transmission Date: 20230113
  Serious: Yes (Hospitalization, Other)
  Sender: FDA-Public Use
  Company Number: None

PATIENT

DRUGS (7)
  1. PEGASPARGASE [Suspect]
     Active Substance: PEGASPARGASE
     Indication: Acute lymphocytic leukaemia
     Dosage: 1640 MG
     Route: 042
     Dates: start: 20220808, end: 20220808
  2. THIOGUANINE ANHYDROUS [Suspect]
     Active Substance: THIOGUANINE ANHYDROUS
     Indication: Acute lymphocytic leukaemia
     Dosage: 37 MG/DAY
     Route: 048
     Dates: start: 20220912, end: 20220926
  3. CYTARABINE [Suspect]
     Active Substance: CYTARABINE
     Indication: Acute lymphocytic leukaemia
     Dosage: 49 MG/DAY FROM 14/09 TO 17/09/2249 MG/DAY FROM 21/09 TO 24/09/22
     Route: 042
     Dates: start: 20220914, end: 20220924
  4. CYCLOPHOSPHAMIDE [Suspect]
     Active Substance: CYCLOPHOSPHAMIDE
     Indication: Acute lymphocytic leukaemia
     Dosage: 650 MG
     Route: 042
     Dates: start: 20220912, end: 20220912
  5. METHOTREXATE (METHOTREXATE SODIUM) [Suspect]
     Active Substance: METHOTREXATE SODIUM
     Indication: Acute lymphocytic leukaemia
     Dosage: 12 MG ON 14/09 AND 21/09/22
     Route: 037
     Dates: start: 20220914, end: 20220921
  6. VINCRISTINE [Suspect]
     Active Substance: VINCRISTINE
     Indication: Acute lymphocytic leukaemia
     Dosage: 0.95 MG ON 08/08, 16/08, 22/08 AND 29/0872022
     Route: 042
     Dates: start: 20220808, end: 20220821
  7. DECADRON [Concomitant]
     Active Substance: DEXAMETHASONE
     Indication: Product used for unknown indication
     Dosage: 6 MG/DAY FROM 01/08 TO 20/08/223 MG/DAY FROM 21/08 TO 23/08/22 1,5 MG/DAY FROM 24/08 TO 26/08/22 0,7
     Route: 048
     Dates: start: 20220801, end: 20220829

REACTIONS (5)
  - Constipation [Recovered/Resolved]
  - Anaemia [Not Recovered/Not Resolved]
  - Febrile neutropenia [Recovered/Resolved]
  - Alanine aminotransferase increased [Recovered/Resolved]
  - Pancytopenia [Not Recovered/Not Resolved]

NARRATIVE: CASE EVENT DATE: 20220822
